FAERS Safety Report 6216905-5 (Version None)
Quarter: 2009Q2

REPORT INFORMATION
  Report Type: 
  Country: None (occurrence: None)
  Receive Date: 20090604
  Receipt Date: 20090527
  Transmission Date: 20091009
  Serious: Yes (Other)
  Sender: FDA-Public Use
  Company Number: 2009SP011599

PATIENT
  Sex: Male

DRUGS (1)
  1. CLARITIN [Suspect]
     Indication: DRUG USE FOR UNKNOWN INDICATION
     Dosage: ONCE; PO
     Route: 048
     Dates: start: 20090522, end: 20090522

REACTIONS (4)
  - ANXIETY [None]
  - DYSPNOEA [None]
  - HALLUCINATION [None]
  - INSOMNIA [None]
